FAERS Safety Report 7593043-0 (Version None)
Quarter: 2011Q3

REPORT INFORMATION
  Report Type: 
  Country: None (occurrence: None)
  Receive Date: 20110706
  Receipt Date: 20110622
  Transmission Date: 20111222
  Serious: Yes (Other)
  Sender: FDA-Public Use
  Company Number: CZ-ROCHE-785202

PATIENT
  Sex: Male

DRUGS (4)
  1. DRUG VEHICLE NOS [Concomitant]
     Dosage: DRUG NAME GIVEN AS: AT1 RECEPTOR ANTAGONIST THERAPY
  2. ACE INHIBITORS [Concomitant]
  3. MIRCERA [Suspect]
     Route: 058
     Dates: start: 20110328, end: 20110427
  4. ARANESP [Suspect]
     Route: 065
     Dates: start: 20071108, end: 20110301

REACTIONS (1)
  - APLASIA PURE RED CELL [None]
